FAERS Safety Report 8369169-0 (Version None)
Quarter: 2012Q1

REPORT INFORMATION
  Report Type: 
  Country: None (occurrence: None)
  Receive Date: 20120323
  Receipt Date: 20111121
  Transmission Date: 20120608
  Serious: Yes (Hospitalization)
  Sender: FDA-Public Use
  Company Number: 163-21880-11112999

PATIENT
  Age: 81 Year
  Sex: Male
  Weight: 72.1219 kg

DRUGS (8)
  1. NEURONTIN [Concomitant]
  2. ROPINIROLE [Concomitant]
  3. REVLIMID [Suspect]
     Indication: MYELODYSPLASTIC SYNDROME
     Dosage: 10 MG, DAILY, PO
     Route: 048
     Dates: start: 20081101
  4. VITAMIN B COMPLEX (B-KOMPLEX ^LECIVA^) [Concomitant]
  5. FISH OIL [Concomitant]
  6. ENABLEX [Concomitant]
  7. SLOW IRON (IRON) [Concomitant]
  8. MULTI-VITAMINS [Concomitant]

REACTIONS (1)
  - FEMUR FRACTURE [None]
